FAERS Safety Report 21197401 (Version 1)
Quarter: 2022Q3

REPORT INFORMATION
  Report Type: Spontaneous
  Country: US (occurrence: US)
  Receive Date: 20220810
  Receipt Date: 20220810
  Transmission Date: 20221027
  Serious: No
  Sender: FDA-Public Use
  Company Number: US-SA-SAC20220802001680

PATIENT
  Age: 60 Year
  Sex: Female

DRUGS (2)
  1. DUPIXENT [Suspect]
     Active Substance: DUPILUMAB
     Indication: Dermatitis atopic
     Route: 058
     Dates: start: 202203
  2. OCRELIZUMAB [Concomitant]
     Active Substance: OCRELIZUMAB

REACTIONS (3)
  - Skin plaque [Unknown]
  - Keratoacanthoma [Unknown]
  - Lichen planus [Unknown]

NARRATIVE: CASE EVENT DATE: 20220501
